FAERS Safety Report 4419461-7 (Version None)
Quarter: 2004Q3

REPORT INFORMATION
  Report Type: 
  Country: None (occurrence: None)
  Receive Date: 20040809
  Receipt Date: 20040202
  Transmission Date: 20050211
  Serious: No
  Sender: FDA-Public Use
  Company Number: US-GLAXOSMITHKLINE-A0496694A

PATIENT
  Age: 29 Year
  Sex: Male
  Weight: 81.4 kg

DRUGS (1)
  1. PAXIL [Suspect]
     Indication: PANIC DISORDER
     Dosage: 20MG AT NIGHT
     Route: 048
     Dates: start: 20030708, end: 20040115

REACTIONS (2)
  - BACK PAIN [None]
  - HEPATIC ENZYME INCREASED [None]
